FAERS Safety Report 8537524-1 (Version None)
Quarter: 2012Q3

REPORT INFORMATION
  Report Type: 
  Country: None (occurrence: None)
  Receive Date: 20120725
  Receipt Date: 20120717
  Transmission Date: 20120928
  Serious: Yes (Other)
  Sender: FDA-Public Use
  Company Number: US-ASTRAZENECA-2012SE50251

PATIENT
  Age: 58 Year
  Sex: Female

DRUGS (3)
  1. CRESTOR [Suspect]
     Route: 048
  2. NEXIUM [Suspect]
     Route: 048
  3. COUMADIN [Suspect]
     Route: 065

REACTIONS (4)
  - RECTAL HAEMORRHAGE [None]
  - GINGIVAL BLEEDING [None]
  - AMNESIA [None]
  - ULCER HAEMORRHAGE [None]
